FAERS Safety Report 18870438 (Version 5)
Quarter: 2021Q2

REPORT INFORMATION
  Report Type: Report from Study
  Country: US (occurrence: US)
  Receive Date: 20210209
  Receipt Date: 20210519
  Transmission Date: 20210717
  Serious: Yes (Other)
  Sender: FDA-Public Use
  Company Number: US-SEATTLE GENETICS-2021SGN00383

PATIENT
  Sex: Female

DRUGS (3)
  1. XELODA [Suspect]
     Active Substance: CAPECITABINE
     Indication: BREAST CANCER FEMALE
     Dosage: 1000 MG, BID
  2. HERCEPTIN [Suspect]
     Active Substance: TRASTUZUMAB
     Indication: BREAST CANCER FEMALE
     Dosage: UNK
  3. TUCATINIB [Suspect]
     Active Substance: TUCATINIB
     Indication: BREAST CANCER FEMALE

REACTIONS (11)
  - Appetite disorder [Unknown]
  - Neoplasm progression [Unknown]
  - Product dose omission issue [Unknown]
  - Cataract operation [Unknown]
  - Onychomadesis [Unknown]
  - Radiotherapy [Unknown]
  - Vaccination complication [Unknown]
  - Adverse event [Unknown]
  - Diarrhoea [Recovering/Resolving]
  - Biopsy liver [Unknown]
  - Fluid replacement [Unknown]
